FAERS Safety Report 10510297 (Version 2)
Quarter: 2014Q4

REPORT INFORMATION
  Report Type: Spontaneous
  Country: US (occurrence: US)
  Receive Date: 20141010
  Receipt Date: 20141010
  Transmission Date: 20150528
  Serious: No
  Sender: FDA-Public Use
  Company Number: US-BAYER-2014-138627

PATIENT
  Sex: Female
  Weight: 99.77 kg

DRUGS (1)
  1. BETASERON [Suspect]
     Active Substance: INTERFERON BETA-1B
     Indication: MULTIPLE SCLEROSIS
     Dosage: UNK, QOD
     Dates: start: 1998

REACTIONS (3)
  - Alopecia [Recovered/Resolved]
  - Influenza [Recovered/Resolved]
  - Adverse drug reaction [None]
